FAERS Safety Report 6851152-5 (Version None)
Quarter: 2010Q3

REPORT INFORMATION
  Report Type: 
  Country: None (occurrence: None)
  Receive Date: 20100716
  Receipt Date: 20080521
  Transmission Date: 20110219
  Serious: No
  Sender: FDA-Public Use
  Company Number: US-PFIZER INC-2007091983

PATIENT
  Sex: Male
  Weight: 98.2 kg

DRUGS (7)
  1. CHANTIX [Suspect]
     Indication: SMOKING CESSATION THERAPY
     Dates: start: 20070101, end: 20070101
  2. ATIVAN [Concomitant]
  3. CRESTOR [Concomitant]
  4. BENICAR [Concomitant]
  5. NADOLOL [Concomitant]
  6. PAXIL [Concomitant]
  7. NORVASC [Concomitant]

REACTIONS (1)
  - HEADACHE [None]
